FAERS Safety Report 7620203-2 (Version None)
Quarter: 2011Q3

REPORT INFORMATION
  Report Type: 
  Country: None (occurrence: None)
  Receive Date: 20110719
  Receipt Date: 20110705
  Transmission Date: 20111222
  Serious: Yes (Other)
  Sender: FDA-Public Use
  Company Number: PHHY2011US59469

PATIENT
  Sex: Female
  Weight: 123.18 kg

DRUGS (16)
  1. CENTRUM [Concomitant]
  2. VOLTAREN [Concomitant]
     Dosage: 1 % ( APPLY TWO TIMES A DAY)
  3. ALLOPURINOL [Concomitant]
     Dosage: 100 MG, ONCE/SINGLE
  4. LEVOXYL [Concomitant]
     Dosage: 25 MG, ONCE/SINGLE
  5. SIMVASTATIN [Concomitant]
     Dosage: 40 MG, ONCE/SINGLE
  6. RECLAST [Suspect]
     Dosage: 5 ML
     Route: 042
     Dates: start: 20110602
  7. MULTI-VITAMIN [Concomitant]
  8. ASPIRIN [Concomitant]
     Dosage: 81 MG, ONCE/SINGLE
  9. KLOR-CON [Concomitant]
     Dosage: 20 MEQ
  10. CLONAZEPAM [Concomitant]
     Dosage: 0.5 MG, TID
  11. OMEPRAZOLE [Concomitant]
     Dosage: 40 MG, ONCE/SINGLE
  12. CYMBALTA [Concomitant]
     Dosage: 60 MG, ONCE/SINGLE
  13. CALCIUM CARBONATE [Concomitant]
  14. HYDROXYCHLOROQUINE SULFATE [Concomitant]
     Dosage: 200 MG(ONE EVERY TWELVE HOURS)
  15. OXYCONTIN [Concomitant]
     Dosage: 20 MG, (ONE EVERY TWLEVE HOURS)
  16. MIRAPEX [Concomitant]
     Dosage: 0.25 MG, TID

REACTIONS (6)
  - WEIGHT INCREASED [None]
  - URINE FLOW DECREASED [None]
  - GAIT DISTURBANCE [None]
  - MUSCLE SPASMS [None]
  - DEPRESSED MOOD [None]
  - OEDEMA PERIPHERAL [None]
